FAERS Safety Report 7432302-9 (Version None)
Quarter: 2011Q2

REPORT INFORMATION
  Report Type: 
  Country: None (occurrence: None)
  Receive Date: 20110422
  Receipt Date: 20110414
  Transmission Date: 20111010
  Serious: Yes (Other)
  Sender: FDA-Public Use
  Company Number: US-JNJFOC-20110408341

PATIENT
  Sex: Female

DRUGS (2)
  1. MONISTAT [Suspect]
     Indication: PRODUCT USED FOR UNKNOWN INDICATION
     Route: 065
  2. MONISTAT [Suspect]
     Route: 065

REACTIONS (6)
  - VAGINAL HAEMORRHAGE [None]
  - VULVOVAGINAL PAIN [None]
  - PRODUCT MEASURED POTENCY ISSUE [None]
  - VAGINAL EROSION [None]
  - VULVOVAGINAL DISCOMFORT [None]
  - PRODUCT QUALITY ISSUE [None]
